FAERS Safety Report 6431626-1 (Version None)
Quarter: 2009Q4

REPORT INFORMATION
  Report Type: 
  Country: None (occurrence: None)
  Receive Date: 20091103
  Receipt Date: 20091022
  Transmission Date: 20100525
  Serious: Yes (Other)
  Sender: FDA-Public Use
  Company Number: 2009AL006824

PATIENT
  Age: 76 Year
  Sex: Female

DRUGS (11)
  1. DICLOFENAC SODIUM [Suspect]
     Dosage: 25 MG;TID
     Dates: start: 20070726
  2. GEMCITABINE [Concomitant]
  3. BENDROFLUMETHIAZIDE [Concomitant]
  4. NITRAZEPAM [Concomitant]
  5. OMEPRAZOLE [Concomitant]
  6. NULYTELY [Concomitant]
  7. MIRTAZAPINE [Concomitant]
  8. MORPHINE [Concomitant]
  9. ORAMORPH SR [Concomitant]
  10. DEXAMETHASONE [Concomitant]
  11. FORTISIP [Concomitant]

REACTIONS (1)
  - RENAL IMPAIRMENT [None]
